FAERS Safety Report 8860750 (Version 1)
Quarter: 2012Q4

REPORT INFORMATION
  Report Type: 
  Country: US (occurrence: US)
  Receive Date: 20121026
  Receipt Date: 20121026
  Transmission Date: 20130627
  Serious: Yes (Death, Hospitalization, Other)
  Sender: FDA-Public Use
  Company Number: US-PAR PHARMACEUTICAL, INC-2012SCPR004673

PATIENT

DRUGS (1)
  1. MINOCYCLINE HYDROCHLORIDE [Suspect]
     Indication: ACNE
     Dosage: UNK, Unknown
     Route: 065

REACTIONS (30)
  - Multi-organ failure [Fatal]
  - Septic shock [Unknown]
  - Cardiogenic shock [Unknown]
  - Pulmonary embolism [Unknown]
  - Bacteraemia [Unknown]
  - Fungaemia [Unknown]
  - Colitis ischaemic [Unknown]
  - Intra-abdominal haemorrhage [Unknown]
  - Peripheral ischaemia [Unknown]
  - Cardiomyopathy acute [Recovered/Resolved]
  - Death [Fatal]
  - Drug reaction with eosinophilia and systemic symptoms [Fatal]
  - Syncope [None]
  - Tachycardia [None]
  - Respiratory distress [None]
  - Cardiac arrest [None]
  - Cardiac failure congestive [None]
  - Renal failure acute [None]
  - Continuous haemodiafiltration [None]
  - Eosinophilic myocarditis [None]
  - Myocardial infarction [None]
  - Hyperbilirubinaemia [None]
  - Pancreatitis [None]
  - Respiratory failure [None]
  - Pancreatic necrosis [None]
  - Immunosuppression [None]
  - Catabolic state [None]
  - Wound dehiscence [None]
  - Mental status changes [None]
  - Acute hepatic failure [None]
